FAERS Safety Report 20299766 (Version 1)
Quarter: 2022Q1

REPORT INFORMATION
  Report Type: Spontaneous
  Country: US (occurrence: None)
  Receive Date: 20220105
  Receipt Date: 20220105
  Transmission Date: 20220423
  Serious: Yes (Hospitalization, Other)
  Sender: FDA-Public Use
  Company Number: None

PATIENT
  Age: 14 Year
  Sex: Female
  Weight: 63 kg

DRUGS (4)
  1. PFIZER-BIONTECH COVID-19 VACCINE [Suspect]
     Active Substance: TOZINAMERAN
     Indication: COVID-19 immunisation
     Dosage: OTHER FREQUENCY : 1 SHOT;?
     Route: 030
     Dates: end: 20211026
  2. MEDROXYPROGESTERONE ACETATE [Suspect]
     Active Substance: MEDROXYPROGESTERONE ACETATE
     Indication: COVID-19 immunisation
     Dosage: FREQUENCY : TWICE A DAY;?
     Route: 048
     Dates: start: 20211102, end: 20211224
  3. FERROUS SULFATE [Concomitant]
     Active Substance: FERROUS SULFATE
  4. EPIPEN [Concomitant]
     Active Substance: EPINEPHRINE

REACTIONS (8)
  - Syncope [None]
  - Depression [None]
  - Mood swings [None]
  - Suicidal ideation [None]
  - Acne [None]
  - Breast tenderness [None]
  - Swelling [None]
  - Intermenstrual bleeding [None]

NARRATIVE: CASE EVENT DATE: 20211025
